FAERS Safety Report 5886108-2 (Version None)
Quarter: 2008Q3

REPORT INFORMATION
  Report Type: 
  Country: None (occurrence: None)
  Receive Date: 20080917
  Receipt Date: 20080908
  Transmission Date: 20090109
  Serious: Yes (Hospitalization)
  Sender: FDA-Public Use
  Company Number: US-WATSON-2008-05382

PATIENT
  Age: 20 Year
  Sex: Male

DRUGS (3)
  1. DILTIA XT (WATSON LABORATORIES) [Suspect]
     Indication: ATRIAL FIBRILLATION
     Dosage: 5 MG/HOUR CONTINUOUS INFUSION
     Route: 042
     Dates: start: 20070901, end: 20070901
  2. DILTIA XT (WATSON LABORATORIES) [Suspect]
     Dosage: 25 MG X 1
     Route: 042
  3. METOPROLOL (WATSON LABORATORIES) [Suspect]
     Indication: ATRIAL FIBRILLATION
     Dosage: 15 MG, OVER 15 MINUTES
     Route: 042
     Dates: start: 20070901, end: 20070901

REACTIONS (1)
  - VENTRICULAR FIBRILLATION [None]
